FAERS Safety Report 20778385 (Version 1)
Quarter: 2022Q2

REPORT INFORMATION
  Report Type: Spontaneous
  Country: US (occurrence: None)
  Receive Date: 20220503
  Receipt Date: 20220503
  Transmission Date: 20220721
  Serious: No
  Sender: FDA-Public Use
  Company Number: None

PATIENT
  Age: 84 Year
  Sex: Male
  Weight: 83.01 kg

DRUGS (19)
  1. LENALIDOMIDE [Suspect]
     Active Substance: LENALIDOMIDE
     Indication: Plasma cell myeloma
     Dosage: OTHER FREQUENCY : 14D OF 28D;?
     Route: 048
     Dates: start: 20220312
  2. ACYCLOVIR [Suspect]
     Active Substance: ACYCLOVIR
  3. AMLODIPINE [Concomitant]
  4. ASPIRIN [Concomitant]
  5. ATORVASTATIN [Concomitant]
  6. CARVEDILOL [Concomitant]
     Active Substance: CARVEDILOL
  7. DEXAMETHASONE [Concomitant]
  8. ELIQUIS [Concomitant]
  9. HYDROCODONE-ACETAMINOPHEN [Concomitant]
  10. LEVOTHYROXINE [Concomitant]
  11. ONDANSETRON [Concomitant]
  12. PRADAXA [Concomitant]
  13. PROTONIX [Concomitant]
  14. SOLIFENACIN [Concomitant]
     Active Substance: SOLIFENACIN
  15. TAMSULOSIN [Concomitant]
     Active Substance: TAMSULOSIN
  16. TELMISARTAN-HCTZ [Concomitant]
  17. TULANCE [Concomitant]
  18. ULORIC [Concomitant]
  19. ZANAFLEX [Concomitant]

REACTIONS (1)
  - Bradycardia [None]
